FAERS Safety Report 14239243 (Version 1)
Quarter: 2017Q4

REPORT INFORMATION
  Report Type: Spontaneous
  Country: US (occurrence: US)
  Receive Date: 20171127
  Receipt Date: 20171127
  Transmission Date: 20180321
  Serious: Yes (Other)
  Sender: FDA-Public Use
  Company Number: None

PATIENT
  Age: 38 Year
  Sex: Male
  Weight: 55.8 kg

DRUGS (2)
  1. DIAZEPAM. [Suspect]
     Active Substance: DIAZEPAM
     Indication: SEDATION
     Dosage: ?          OTHER FREQUENCY:ONE TIME ONLY;OTHER ROUTE:G-TUBE?
     Dates: start: 20170824, end: 20170824
  2. DIAZEPAM. [Suspect]
     Active Substance: DIAZEPAM
     Indication: FEELING OF RELAXATION
     Dosage: ?          OTHER FREQUENCY:ONE TIME ONLY;OTHER ROUTE:G-TUBE?
     Dates: start: 20170824, end: 20170824

REACTIONS (1)
  - Heart rate decreased [None]

NARRATIVE: CASE EVENT DATE: 20170824
